FAERS Safety Report 19486307 (Version 2)
Quarter: 2021Q4

REPORT INFORMATION
  Report Type: Report from Study
  Country: FR (occurrence: FR)
  Receive Date: 20210702
  Receipt Date: 20211005
  Transmission Date: 20220303
  Serious: Yes (Hospitalization)
  Sender: FDA-Public Use
  Company Number: FR-ROCHE-2858386

PATIENT
  Age: 77 Year
  Sex: Male
  Weight: 52 kg

DRUGS (8)
  1. ATEZOLIZUMAB [Suspect]
     Active Substance: ATEZOLIZUMAB
     Indication: Bladder cancer
     Dosage: C1, CUMULATIVE DOSE 1200 MG,), (21 [PLUS MINUS 2] DAYS) FOR 1 YEAR (18 CYCLES AS A MAXIMUM), EVERY 3
     Route: 042
     Dates: start: 20210119, end: 20210119
  2. ATEZOLIZUMAB [Suspect]
     Active Substance: ATEZOLIZUMAB
     Dosage: C2, CUMULATIVE DOSE 2400 MG
     Route: 042
     Dates: start: 20210209, end: 20210209
  3. ATEZOLIZUMAB [Suspect]
     Active Substance: ATEZOLIZUMAB
     Dosage: C3 CUMULATIVE DOSE 3600 MG
     Route: 042
     Dates: start: 20210301, end: 20210301
  4. ATEZOLIZUMAB [Suspect]
     Active Substance: ATEZOLIZUMAB
     Dosage: C4 CUMULATIVE DOSE 4800 MG
     Route: 042
     Dates: start: 20210323, end: 20210323
  5. ATEZOLIZUMAB [Suspect]
     Active Substance: ATEZOLIZUMAB
     Dosage: C5 CUMULATIVE DOSE 6000 MG
     Route: 042
     Dates: start: 20210413, end: 20210413
  6. ATEZOLIZUMAB [Suspect]
     Active Substance: ATEZOLIZUMAB
     Route: 042
     Dates: start: 20210505, end: 20210505
  7. BCG VACCINE [Suspect]
     Active Substance: BCG VACCINE
     Indication: Bladder cancer
     Dosage: ON 13/APR/2021 HAD THE LAST DOSE ADMINISTERED BEFORE OCCURENCE OF EVENT.?LAST DOSE ADMINISTERED BEFO
     Route: 065
     Dates: start: 20210119
  8. PLAVIX [Concomitant]
     Active Substance: CLOPIDOGREL BISULFATE
     Route: 048
     Dates: start: 1995

REACTIONS (1)
  - Ischaemic stroke [Recovered/Resolved with Sequelae]

NARRATIVE: CASE EVENT DATE: 20210526
